FAERS Safety Report 8916591 (Version 1)
Quarter: 2012Q4

REPORT INFORMATION
  Report Type: Report from Study
  Country: BR (occurrence: BR)
  Receive Date: 20121120
  Receipt Date: 20121120
  Transmission Date: 20130627
  Serious: Yes (Other)
  Sender: FDA-Public Use
  Company Number: BR-ROCHE-1069595

PATIENT
  Sex: Female
  Weight: 51 kg

DRUGS (6)
  1. TOCILIZUMAB [Suspect]
     Indication: RHEUMATOID ARTHRITIS
     Route: 065
     Dates: start: 20100515, end: 201203
  2. DEFLAZACORT [Concomitant]
     Indication: PRODUCT USED FOR UNKNOWN INDICATION
     Route: 065
  3. PRISTIQ [Concomitant]
     Route: 065
  4. XEFO [Concomitant]
     Route: 065
  5. CALCIUM [Concomitant]
  6. VITAMIN D [Concomitant]

REACTIONS (4)
  - Nephrolithiasis [Recovered/Resolved]
  - Rib fracture [Unknown]
  - Cough [Unknown]
  - Osteopenia [Unknown]
